FAERS Safety Report 18311857 (Version 1)
Quarter: 2020Q3

REPORT INFORMATION
  Report Type: Report from Study
  Country: AU (occurrence: AU)
  Receive Date: 20200925
  Receipt Date: 20200925
  Transmission Date: 20201103
  Serious: Yes (Death)
  Sender: FDA-Public Use
  Company Number: AU-MYLANLABS-2020M1081049

PATIENT

DRUGS (1)
  1. PACLITAXEL. [Suspect]
     Active Substance: PACLITAXEL
     Indication: ADENOCARCINOMA PANCREAS
     Dosage: 100 MILLIGRAM/SQ. METER, QW, SCHEDULED FOR 6 WEEKS
     Route: 065

REACTIONS (2)
  - Enterocolitis [Fatal]
  - Febrile neutropenia [Fatal]
